FAERS Safety Report 19417413 (Version 1)
Quarter: 2021Q2

REPORT INFORMATION
  Report Type: Spontaneous
  Country: US (occurrence: US)
  Receive Date: 20210615
  Receipt Date: 20210615
  Transmission Date: 20210717
  Serious: Yes (Other)
  Sender: FDA-Public Use
  Company Number: US-GLAXOSMITHKLINE-US2021GSK126253

PATIENT
  Sex: Female

DRUGS (4)
  1. RANITIDINE. [Suspect]
     Active Substance: RANITIDINE
     Indication: IRRITABLE BOWEL SYNDROME
     Dosage: UNK, QD
     Route: 065
     Dates: start: 201012, end: 202003
  2. ZANTAC [Suspect]
     Active Substance: RANITIDINE HYDROCHLORIDE
     Indication: IRRITABLE BOWEL SYNDROME
     Dosage: UNK UNK, QD
     Route: 065
     Dates: start: 201012, end: 202003
  3. RANITIDINE. [Suspect]
     Active Substance: RANITIDINE
     Indication: IRRITABLE BOWEL SYNDROME
     Dosage: UNK, QD
     Route: 065
     Dates: start: 201012, end: 202003
  4. ZANTAC [Suspect]
     Active Substance: RANITIDINE HYDROCHLORIDE
     Indication: IRRITABLE BOWEL SYNDROME
     Dosage: UNK UNK, QD
     Route: 065
     Dates: start: 201012, end: 202003

REACTIONS (1)
  - Breast cancer [Unknown]
